FAERS Safety Report 8156974-9 (Version None)
Quarter: 2012Q1

REPORT INFORMATION
  Report Type: 
  Country: None (occurrence: None)
  Receive Date: 20120222
  Receipt Date: 20120213
  Transmission Date: 20120608
  Serious: Yes (Congenital Anomaly)
  Sender: FDA-Public Use
  Company Number: DE-JNJFOC-20120206095

PATIENT
  Sex: Male
  Weight: 3.5 kg

DRUGS (2)
  1. TOPAMAX [Suspect]
     Indication: FOETAL EXPOSURE DURING PREGNANCY
     Dosage: 0 TO 38.5 GESTATIONAL WEEK
     Route: 064
     Dates: start: 20101104, end: 20110802
  2. FOLIO FORTE [Suspect]
     Indication: FOETAL EXPOSURE DURING PREGNANCY
     Dosage: 9.1 TO 12 GESTATIONAL WEEK
     Route: 064
     Dates: start: 20110107

REACTIONS (1)
  - POLYDACTYLY [None]
